FAERS Safety Report 16216903 (Version 1)
Quarter: 2019Q2

REPORT INFORMATION
  Report Type: Spontaneous
  Country: US (occurrence: US)
  Receive Date: 20190419
  Receipt Date: 20190419
  Transmission Date: 20190711
  Serious: No
  Sender: FDA-Public Use
  Company Number: US-ASTRAZENECA-2019SE48218

PATIENT
  Sex: Female
  Weight: 75.8 kg

DRUGS (2)
  1. IBRANCE [Concomitant]
     Active Substance: PALBOCICLIB
  2. FASLODEX [Suspect]
     Active Substance: FULVESTRANT
     Indication: BREAST CANCER METASTATIC
     Route: 030
     Dates: start: 2019

REACTIONS (8)
  - Dry skin [Not Recovered/Not Resolved]
  - Neutrophil count decreased [Unknown]
  - Skin disorder [Recovered/Resolved]
  - White blood cell count decreased [Recovered/Resolved]
  - Injection site swelling [Recovered/Resolved]
  - Incorrect route of product administration [Unknown]
  - Injection site erythema [Recovered/Resolved]
  - Injection site pain [Recovered/Resolved]
